FAERS Safety Report 8365834-X (Version None)
Quarter: 2012Q2

REPORT INFORMATION
  Report Type: 
  Country: None (occurrence: None)
  Receive Date: 20120515
  Receipt Date: 20120509
  Transmission Date: 20120825
  Serious: Yes (Disabling)
  Sender: FDA-Public Use
  Company Number: SP05724

PATIENT
  Age: 68 Year
  Sex: Male

DRUGS (1)
  1. MOVIPREP [Suspect]
     Indication: BOWEL PREPARATION
     Dosage: ORAL
     Route: 048

REACTIONS (2)
  - TACHYCARDIA [None]
  - HYPERSENSITIVITY [None]
